FAERS Safety Report 14563915 (Version 1)
Quarter: 2018Q1

REPORT INFORMATION
  Report Type: Spontaneous
  Country: IT (occurrence: IT)
  Receive Date: 20180222
  Receipt Date: 20180222
  Transmission Date: 20180509
  Serious: Yes (Life-Threatening, Hospitalization, Other)
  Sender: FDA-Public Use
  Company Number: IT-MYLANLABS-2018M1011716

PATIENT
  Age: 4 Month
  Weight: 5 kg

DRUGS (30)
  1. LIDOCAINE. [Suspect]
     Active Substance: LIDOCAINE
     Indication: WOLFF-PARKINSON-WHITE SYNDROME
     Dosage: UNK
     Route: 065
  2. MEXILETINE [Suspect]
     Active Substance: MEXILETINE
     Indication: ELECTROCARDIOGRAM QT PROLONGED
  3. LIDOCAINE. [Suspect]
     Active Substance: LIDOCAINE
     Indication: CARDIOMYOPATHY
     Dosage: UNK
     Route: 065
  4. AMIODARONE [Suspect]
     Active Substance: AMIODARONE
     Indication: CARDIOMYOPATHY
  5. AMIODARONE [Suspect]
     Active Substance: AMIODARONE
     Indication: TORSADE DE POINTES
  6. MEXILETINE [Suspect]
     Active Substance: MEXILETINE
     Indication: TORSADE DE POINTES
  7. MEXILETINE [Suspect]
     Active Substance: MEXILETINE
     Indication: WOLFF-PARKINSON-WHITE SYNDROME
  8. LIDOCAINE. [Suspect]
     Active Substance: LIDOCAINE
     Indication: ELECTROCARDIOGRAM QT PROLONGED
     Dosage: UNK
     Route: 065
  9. LIDOCAINE. [Suspect]
     Active Substance: LIDOCAINE
     Indication: VENTRICULAR ARRHYTHMIA
     Dosage: UNK
     Route: 065
  10. METOPROLOL. [Suspect]
     Active Substance: METOPROLOL
     Indication: VENTRICULAR ARRHYTHMIA
     Dosage: UNK
     Route: 065
  11. METOPROLOL. [Suspect]
     Active Substance: METOPROLOL
     Indication: TORSADE DE POINTES
  12. METOPROLOL. [Suspect]
     Active Substance: METOPROLOL
     Indication: CARDIOMYOPATHY
  13. FLECAINIDE [Suspect]
     Active Substance: FLECAINIDE
     Indication: TORSADE DE POINTES
  14. MEXILETINE [Suspect]
     Active Substance: MEXILETINE
     Indication: ARRHYTHMIA
     Dosage: UNK
     Route: 065
  15. MEXILETINE [Suspect]
     Active Substance: MEXILETINE
     Indication: CARDIOMYOPATHY
  16. LIDOCAINE. [Suspect]
     Active Substance: LIDOCAINE
     Indication: ARRHYTHMIA
     Dosage: UNK
     Route: 065
  17. AMIODARONE [Suspect]
     Active Substance: AMIODARONE
     Indication: ELECTROCARDIOGRAM QT PROLONGED
  18. MEXILETINE [Suspect]
     Active Substance: MEXILETINE
     Indication: VENTRICULAR ARRHYTHMIA
  19. METOPROLOL. [Suspect]
     Active Substance: METOPROLOL
     Indication: WOLFF-PARKINSON-WHITE SYNDROME
  20. METOPROLOL. [Suspect]
     Active Substance: METOPROLOL
     Indication: ARRHYTHMIA
  21. FLECAINIDE [Suspect]
     Active Substance: FLECAINIDE
     Indication: ARRHYTHMIA
     Dosage: UNK
     Route: 065
  22. METOPROLOL. [Suspect]
     Active Substance: METOPROLOL
     Indication: ELECTROCARDIOGRAM QT PROLONGED
  23. AMIODARONE [Suspect]
     Active Substance: AMIODARONE
     Indication: VENTRICULAR ARRHYTHMIA
  24. FLECAINIDE [Suspect]
     Active Substance: FLECAINIDE
     Indication: CARDIOMYOPATHY
  25. LIDOCAINE. [Suspect]
     Active Substance: LIDOCAINE
     Indication: TORSADE DE POINTES
     Dosage: UNK
     Route: 065
  26. AMIODARONE [Suspect]
     Active Substance: AMIODARONE
     Indication: ARRHYTHMIA
     Dosage: UNK
     Route: 065
  27. AMIODARONE [Suspect]
     Active Substance: AMIODARONE
     Indication: WOLFF-PARKINSON-WHITE SYNDROME
  28. FLECAINIDE [Suspect]
     Active Substance: FLECAINIDE
     Indication: ELECTROCARDIOGRAM QT PROLONGED
  29. FLECAINIDE [Suspect]
     Active Substance: FLECAINIDE
     Indication: VENTRICULAR TACHYCARDIA
  30. FLECAINIDE [Suspect]
     Active Substance: FLECAINIDE
     Indication: WOLFF-PARKINSON-WHITE SYNDROME

REACTIONS (2)
  - No adverse event [Unknown]
  - Drug ineffective [Unknown]
